FAERS Safety Report 12889058 (Version 5)
Quarter: 2016Q4

REPORT INFORMATION
  Report Type: Report from Study
  Country: US (occurrence: US)
  Receive Date: 20161027
  Receipt Date: 20161208
  Transmission Date: 20170207
  Serious: No
  Sender: FDA-Public Use
  Company Number: PHEH2016US027939

PATIENT
  Sex: Female

DRUGS (1)
  1. COSENTYX [Suspect]
     Active Substance: SECUKINUMAB
     Indication: PSORIASIS
     Dosage: 300 MG, QW
     Route: 058
     Dates: start: 20161024

REACTIONS (6)
  - Amnesia [Unknown]
  - Device issue [Unknown]
  - Eye pruritus [Not Recovered/Not Resolved]
  - Dysphonia [Unknown]
  - Ocular hyperaemia [Not Recovered/Not Resolved]
  - Confusional state [Unknown]
